FAERS Safety Report 5135218-6 (Version None)
Quarter: 2006Q4

REPORT INFORMATION
  Report Type: 
  Country: None (occurrence: None)
  Receive Date: 20061024
  Receipt Date: 20061024
  Transmission Date: 20070319
  Serious: Yes (Hospitalization)
  Sender: FDA-Public Use
  Company Number: None

PATIENT
  Sex: Male

DRUGS (12)
  1. ETODOLAC [Suspect]
     Indication: OSTEOARTHRITIS
     Dosage: 400 MG BID PO
     Route: 048
     Dates: start: 20060215, end: 20060802
  2. MULTIVITAMINS WITH MINERALS [Concomitant]
  3. ASPIRIN [Concomitant]
  4. CITALOPRAM HYDROBROMIDE [Concomitant]
  5. FINASTERIDE [Concomitant]
  6. LISINOPRIL [Concomitant]
  7. OLANZAPINE [Concomitant]
  8. FELODIPINE [Concomitant]
  9. APAP TAB [Concomitant]
  10. GLIPIZIDE [Concomitant]
  11. METOPROLOL TARTRATE [Concomitant]
  12. TOLTERODINE [Concomitant]

REACTIONS (1)
  - RECTAL HAEMORRHAGE [None]
